FAERS Safety Report 23608990 (Version 1)
Quarter: 2024Q1

REPORT INFORMATION
  Report Type: Spontaneous
  Country: GB (occurrence: GB)
  Receive Date: 20240308
  Receipt Date: 20240308
  Transmission Date: 20240410
  Serious: Yes (Hospitalization, Other)
  Sender: FDA-Public Use
  Company Number: GB-PHARMVIT-4556-3352-ER24-RN933

PATIENT
  Age: 35 Year
  Sex: Female

DRUGS (1)
  1. PREDNISOLONE [Suspect]
     Active Substance: PREDNISOLONE
     Indication: Sarcoidosis
     Route: 065

REACTIONS (3)
  - Immunosuppression [Recovering/Resolving]
  - Infection reactivation [Recovering/Resolving]
  - Mycobacterium test positive [Recovering/Resolving]
